FAERS Safety Report 11870977 (Version 1)
Quarter: 2015Q4

REPORT INFORMATION
  Report Type: Spontaneous
  Country: KR (occurrence: KR)
  Receive Date: 20151228
  Receipt Date: 20151228
  Transmission Date: 20160305
  Serious: Yes (Death, Hospitalization)
  Sender: FDA-Public Use
  Company Number: KR-CELGENE-KOR-2015062860

PATIENT
  Age: 76 Year
  Sex: Female
  Weight: 35 kg

DRUGS (7)
  1. PRABEX [Concomitant]
     Indication: DIABETES MELLITUS
     Dosage: 1000 MILLIGRAM
     Route: 048
     Dates: start: 20150320, end: 20150530
  2. DEXAMETHASONE. [Concomitant]
     Active Substance: DEXAMETHASONE
     Indication: PRODUCT USED FOR UNKNOWN INDICATION
     Route: 065
  3. PROMAC [Concomitant]
     Active Substance: NITROFURANTOIN
     Indication: DYSPEPSIA
     Dosage: 150 MILLIGRAM
     Route: 048
     Dates: start: 20150320, end: 20150525
  4. REVLIMID [Suspect]
     Active Substance: LENALIDOMIDE
     Route: 048
     Dates: start: 20150323, end: 20150412
  5. REVLIMID [Suspect]
     Active Substance: LENALIDOMIDE
     Indication: PLASMA CELL MYELOMA
     Route: 048
     Dates: start: 20141210
  6. JANUVIA [Concomitant]
     Active Substance: SITAGLIPTIN PHOSPHATE
     Indication: DIABETES MELLITUS
     Dosage: 100 MILLIGRAM
     Route: 048
     Dates: start: 20150320, end: 20150525
  7. PANBURON [Concomitant]
     Indication: DYSPEPSIA
     Dosage: 10 MILLIGRAM
     Route: 048
     Dates: start: 20150320, end: 20150525

REACTIONS (2)
  - Plasma cell myeloma [Fatal]
  - Asthenia [Not Recovered/Not Resolved]

NARRATIVE: CASE EVENT DATE: 20150523
